FAERS Safety Report 20778535 (Version 4)
Quarter: 2022Q2

REPORT INFORMATION
  Report Type: Spontaneous
  Country: US (occurrence: US)
  Receive Date: 20220503
  Receipt Date: 20220526
  Transmission Date: 20220721
  Serious: Yes (Other)
  Sender: FDA-Public Use
  Company Number: US-PFIZER INC-202200625930

PATIENT
  Age: 48 Year
  Sex: Female
  Weight: 68.027 kg

DRUGS (4)
  1. XELJANZ [Suspect]
     Active Substance: TOFACITINIB CITRATE
     Indication: Rheumatoid arthritis
     Dosage: 5 MG, 2X/DAY
     Dates: start: 201508
  2. XELJANZ [Suspect]
     Active Substance: TOFACITINIB CITRATE
     Dosage: 5 MG, 2X/DAY
     Dates: start: 2016
  3. METHOTREXATE [Concomitant]
     Active Substance: METHOTREXATE
     Dosage: UNK (LONG AGO)
  4. PREDNISONE [Concomitant]
     Active Substance: PREDNISONE
     Dosage: UNK (LONG AGO)

REACTIONS (3)
  - Tendon rupture [Recovered/Resolved]
  - Disease recurrence [Recovered/Resolved]
  - Finger deformity [Recovered/Resolved]

NARRATIVE: CASE EVENT DATE: 20191101
